FAERS Safety Report 26153266 (Version 1)
Quarter: 2025Q4

REPORT INFORMATION
  Report Type: Spontaneous
  Country: US (occurrence: US)
  Receive Date: 20251214
  Receipt Date: 20251214
  Transmission Date: 20260118
  Serious: No
  Sender: ABBVIE
  Company Number: US-ABBVIE-6589006

PATIENT

DRUGS (1)
  1. SAPHRIS [Suspect]
     Active Substance: ASENAPINE MALEATE
     Indication: Product used for unknown indication
     Route: 048

REACTIONS (4)
  - Feeding disorder [Unknown]
  - Product taste abnormal [Unknown]
  - Drug ineffective [Unknown]
  - Fluid intake reduced [Unknown]
